FAERS Safety Report 15114903 (Version 1)
Quarter: 2018Q2

REPORT INFORMATION
  Report Type: Spontaneous
  Country: US (occurrence: US)
  Receive Date: 20180612
  Receipt Date: 20180612
  Transmission Date: 20180711
  Serious: Yes (Death, Hospitalization)
  Sender: FDA-Public Use
  Company Number: None

PATIENT
  Age: 65 Year
  Sex: Male
  Weight: 48.99 kg

DRUGS (12)
  1. BREO ELLIPTA [Suspect]
     Active Substance: FLUTICASONE FUROATE\VILANTEROL TRIFENATATE
     Indication: ASTHMA
     Dosage: ?          QUANTITY:INHALER;?
     Route: 055
     Dates: start: 20180405, end: 20180410
  2. MYCOPHENOLATE [Concomitant]
     Active Substance: MYCOPHENOLIC ACID
  3. MUTLTI-VITAMIN [Concomitant]
  4. OTHER BLOOD PRESSURE MEDS [Concomitant]
     Active Substance: UNSPECIFIED INGREDIENT
  5. FUROSEMIDE. [Concomitant]
     Active Substance: FUROSEMIDE
  6. LAMOTRIGINE. [Concomitant]
     Active Substance: LAMOTRIGINE
  7. ZORTRESS [Concomitant]
     Active Substance: EVEROLIMUS
  8. CALCIUM W/ VIT D [Concomitant]
  9. CALCIUM W VIT D [Concomitant]
  10. URSODIOL. [Concomitant]
     Active Substance: URSODIOL
  11. LEVETIRACETAM. [Concomitant]
     Active Substance: LEVETIRACETAM
  12. TESTOSTERONE. [Concomitant]
     Active Substance: TESTOSTERONE

REACTIONS (2)
  - Adverse drug reaction [None]
  - Condition aggravated [None]

NARRATIVE: CASE EVENT DATE: 20180504
